FAERS Safety Report 10695503 (Version 1)
Quarter: 2014Q4

REPORT INFORMATION
  Report Type: Spontaneous
  Country: US (occurrence: None)
  Receive Date: 20141223
  Receipt Date: 20141223
  Transmission Date: 20150529
  Serious: No
  Sender: FDA-Public Use
  Company Number: 1000070624

PATIENT
  Age: 66 Year
  Sex: Female

DRUGS (4)
  1. DOCUSATE [Concomitant]
     Active Substance: DOCUSATE
  2. HERB (NOS) [Concomitant]
  3. MIRALAX (POLYETHYLENE GLYCOL) [Concomitant]
  4. LINZESS [Suspect]
     Active Substance: LINACLOTIDE
     Indication: IRRITABLE BOWEL SYNDROME
     Route: 048
     Dates: start: 20140901

REACTIONS (2)
  - Visual impairment [None]
  - Off label use [None]

NARRATIVE: CASE EVENT DATE: 201408
